FAERS Safety Report 10381829 (Version 2)
Quarter: 2014Q3

REPORT INFORMATION
  Report Type: Spontaneous
  Country: US (occurrence: US)
  Receive Date: 20140813
  Receipt Date: 20140813
  Transmission Date: 20150326
  Serious: Yes (Hospitalization)
  Sender: FDA-Public Use
  Company Number: US-GLAXOSMITHKLINE-A0694997A

PATIENT
  Sex: Male
  Weight: 75 kg

DRUGS (2)
  1. ROSIGLITAZONE MALEATE. [Suspect]
     Active Substance: ROSIGLITAZONE MALEATE
     Indication: DIABETES MELLITUS
     Dosage: 4MG PER DAY
     Route: 048
     Dates: start: 200403, end: 200601
  2. AVANDIA [Suspect]
     Active Substance: ROSIGLITAZONE MALEATE
     Indication: TYPE 2 DIABETES MELLITUS
     Dosage: 8MG PER DAY
     Route: 048
     Dates: start: 2003, end: 200702

REACTIONS (13)
  - Ventricular tachycardia [Unknown]
  - Pulmonary oedema [Unknown]
  - Ventricular extrasystoles [Unknown]
  - Congestive cardiomyopathy [Unknown]
  - Atrial fibrillation [Unknown]
  - Cranial nerve paralysis [Unknown]
  - Illusion [Unknown]
  - Myocardial infarction [Unknown]
  - Convulsion [Unknown]
  - Cardiac failure congestive [Unknown]
  - Hemiplegia [Unknown]
  - Cerebrovascular accident [Unknown]
  - Injury [Unknown]
